FAERS Safety Report 24976473 (Version 1)
Quarter: 2025Q1

REPORT INFORMATION
  Report Type: Spontaneous
  Country: US (occurrence: US)
  Receive Date: 20250217
  Receipt Date: 20250217
  Transmission Date: 20250409
  Serious: Yes (Other)
  Sender: ELI LILLY AND COMPANY
  Company Number: US-ELI_LILLY_AND_COMPANY-US202502011196

PATIENT
  Age: 67 Year
  Sex: Male

DRUGS (3)
  1. INSULIN LISPRO [Suspect]
     Active Substance: INSULIN LISPRO
     Indication: Product used for unknown indication
     Route: 065
     Dates: start: 1995
  2. INSULIN LISPRO [Suspect]
     Active Substance: INSULIN LISPRO
     Route: 065
     Dates: start: 20250204
  3. INSULIN LISPRO [Suspect]
     Active Substance: INSULIN LISPRO
     Route: 065
     Dates: start: 20250204

REACTIONS (2)
  - Blood glucose increased [Recovered/Resolved]
  - Drug ineffective [Recovered/Resolved]

NARRATIVE: CASE EVENT DATE: 20250213
